FAERS Safety Report 10214088 (Version 1)
Quarter: 2014Q2

REPORT INFORMATION
  Report Type: Spontaneous
  Country: GB (occurrence: GB)
  Receive Date: 20140603
  Receipt Date: 20140603
  Transmission Date: 20141212
  Serious: Yes (Death, Hospitalization)
  Sender: FDA-Public Use
  Company Number: GB-JNJFOC-20140519011

PATIENT
  Age: 80 Year
  Sex: Female
  Weight: 58 kg

DRUGS (16)
  1. XARELTO [Suspect]
     Indication: CEREBROVASCULAR ACCIDENT PROPHYLAXIS
     Route: 048
     Dates: end: 20131218
  2. XARELTO [Suspect]
     Indication: CEREBROVASCULAR ACCIDENT PROPHYLAXIS
     Route: 048
     Dates: start: 20131129
  3. XARELTO [Suspect]
     Indication: ATRIAL FIBRILLATION
     Route: 048
     Dates: end: 20131218
  4. XARELTO [Suspect]
     Indication: ATRIAL FIBRILLATION
     Route: 048
     Dates: start: 20131129
  5. PARACETAMOL [Concomitant]
     Route: 065
  6. ATORVASTATIN [Concomitant]
     Route: 065
  7. BISOPROLOL [Concomitant]
     Route: 065
  8. BUMETANIDE [Concomitant]
     Route: 065
  9. CITALOPRAM [Concomitant]
     Route: 065
  10. ADCAL D3 [Concomitant]
     Route: 065
  11. DIGOXIN [Concomitant]
     Route: 065
  12. LANSOPRAZOLE [Concomitant]
     Route: 065
  13. RAMIPRIL [Concomitant]
     Route: 065
  14. SERETIDE [Concomitant]
     Route: 065
  15. ALENDRONATE SODIUM [Concomitant]
     Route: 065
  16. TIOTROPIUM [Concomitant]
     Route: 065

REACTIONS (9)
  - Cardiac failure congestive [Fatal]
  - Adverse event [Unknown]
  - Liver function test abnormal [Recovering/Resolving]
  - Hepatic cyst [Unknown]
  - Cholelithiasis [Unknown]
  - Vasodilatation [Unknown]
  - Renal impairment [Unknown]
  - Vasodilatation [Unknown]
  - Gallbladder oedema [Unknown]
